FAERS Safety Report 5408911-5 (Version None)
Quarter: 2007Q3

REPORT INFORMATION
  Report Type: 
  Country: None (occurrence: None)
  Receive Date: 20070808
  Receipt Date: 20070727
  Transmission Date: 20080115
  Serious: Yes (Other)
  Sender: FDA-Public Use
  Company Number: BR-PFIZER INC-2007064120

PATIENT
  Sex: Male
  Weight: 85 kg

DRUGS (1)
  1. LOPID [Suspect]
     Indication: HYPERTRIGLYCERIDAEMIA
     Route: 048

REACTIONS (2)
  - PENILE DISCHARGE [None]
  - URINARY TRACT INFECTION [None]
